FAERS Safety Report 24271607 (Version 1)
Quarter: 2024Q3

REPORT INFORMATION
  Report Type: Spontaneous
  Country: JP (occurrence: JP)
  Receive Date: 20240902
  Receipt Date: 20240902
  Transmission Date: 20241016
  Serious: Yes (Death, Other)
  Sender: BOEHRINGER INGELHEIM
  Company Number: JP-BoehringerIngelheim-2024-BI-048589

PATIENT
  Age: 73 Year
  Sex: Male

DRUGS (3)
  1. AFATINIB [Suspect]
     Active Substance: AFATINIB
     Indication: Lung adenocarcinoma stage IV
     Dosage: DAILY DOSE: 40.0 MILLIGRAM(S)
     Route: 048
  2. AFATINIB [Suspect]
     Active Substance: AFATINIB
     Indication: EGFR gene mutation
     Dosage: 20 MG/DAY
     Route: 048
  3. AFATINIB [Suspect]
     Active Substance: AFATINIB
     Dosage: DAILY DOSE: 20.0 MILLIGRAM(S)
     Route: 048

REACTIONS (5)
  - Death [Fatal]
  - Pneumonia aspiration [Unknown]
  - Diarrhoea [Recovering/Resolving]
  - Decreased appetite [Recovering/Resolving]
  - General physical health deterioration [Unknown]
